FAERS Safety Report 9392316 (Version 6)
Quarter: 2014Q3

REPORT INFORMATION
  Report Type: Spontaneous
  Country: CA (occurrence: CA)
  Receive Date: 20130710
  Receipt Date: 20140905
  Transmission Date: 20150326
  Serious: Yes (Other)
  Sender: FDA-Public Use
  Company Number: CA-ROCHE-1247051

PATIENT
  Age: 18 Year
  Sex: Female

DRUGS (11)
  1. XOLAIR [Suspect]
     Active Substance: OMALIZUMAB
     Route: 058
     Dates: start: 20130429
  2. VENTOLIN [Concomitant]
     Active Substance: ALBUTEROL SULFATE
  3. ATARAX [Concomitant]
     Active Substance: HYDROXYZINE\HYDROXYZINE HYDROCHLORIDE
  4. SINGULAIR [Concomitant]
     Active Substance: MONTELUKAST SODIUM
  5. SYMBICORT [Concomitant]
     Active Substance: BUDESONIDE\FORMOTEROL FUMARATE DIHYDRATE
  6. ALVESCO [Concomitant]
     Active Substance: CICLESONIDE
  7. XOLAIR [Suspect]
     Active Substance: OMALIZUMAB
     Route: 058
     Dates: start: 20130618
  8. XOLAIR [Suspect]
     Active Substance: OMALIZUMAB
     Route: 065
     Dates: start: 20130813
  9. XOLAIR [Suspect]
     Active Substance: OMALIZUMAB
     Route: 065
     Dates: start: 20131218
  10. XOLAIR [Suspect]
     Active Substance: OMALIZUMAB
     Indication: ASTHMA
     Route: 058
     Dates: start: 20100916
  11. NASONEX [Concomitant]
     Active Substance: MOMETASONE FUROATE

REACTIONS (6)
  - Asthma [Unknown]
  - Poor quality sleep [Unknown]
  - Fatigue [Unknown]
  - Respiratory tract congestion [Unknown]
  - Infection [Unknown]
  - Sputum culture positive [Unknown]

NARRATIVE: CASE EVENT DATE: 20130429
